FAERS Safety Report 19938572 (Version 1)
Quarter: 2021Q4

REPORT INFORMATION
  Report Type: Spontaneous
  Country: IT (occurrence: IT)
  Receive Date: 20211011
  Receipt Date: 20211011
  Transmission Date: 20220303
  Serious: Yes (Hospitalization, Other)
  Sender: FDA-Public Use
  Company Number: IT-MINISAL02-792060

PATIENT
  Age: 28 Year
  Sex: Male

DRUGS (3)
  1. CITALOPRAM [Suspect]
     Active Substance: CITALOPRAM HYDROBROMIDE
     Indication: Intentional overdose
     Dosage: 480 MILLIGRAM
     Route: 065
     Dates: start: 20210823, end: 20210823
  2. AMITRIPTYLINE [Suspect]
     Active Substance: AMITRIPTYLINE
     Indication: Intentional overdose
     Dosage: UNK
     Route: 065
     Dates: start: 20210823, end: 20210823
  3. TRAMADOL [Suspect]
     Active Substance: TRAMADOL
     Indication: Intentional overdose
     Dosage: UNK
     Route: 065
     Dates: start: 20210823, end: 20210823

REACTIONS (2)
  - Coma [Not Recovered/Not Resolved]
  - Intentional overdose [Not Recovered/Not Resolved]

NARRATIVE: CASE EVENT DATE: 20210824
